FAERS Safety Report 8539675-4 (Version None)
Quarter: 2012Q3

REPORT INFORMATION
  Report Type: 
  Country: None (occurrence: None)
  Receive Date: 20120726
  Receipt Date: 20110720
  Transmission Date: 20120928
  Serious: No
  Sender: FDA-Public Use
  Company Number: US-ASTRAZENECA-2009UW14106

PATIENT
  Age: 13189 Day
  Sex: Male
  Weight: 108.9 kg

DRUGS (11)
  1. RISPERDAL [Concomitant]
     Dosage: 3 MG TO 4 MG
     Dates: start: 20041012
  2. PROZAC [Concomitant]
     Dates: start: 19930101, end: 20000101
  3. SEROQUEL [Suspect]
     Dosage: 50 MG TO 700 MG
     Route: 048
     Dates: start: 20040102
  4. GEODON [Concomitant]
     Dates: start: 20010101
  5. RISPERDAL [Concomitant]
     Dates: start: 20080101
  6. STELAZINE [Concomitant]
  7. SEROQUEL [Suspect]
     Indication: SCHIZOPHRENIA
     Route: 048
     Dates: start: 20010101, end: 20060101
  8. ZYPREXA [Concomitant]
     Dates: start: 20010101
  9. PAXIL [Concomitant]
     Dates: start: 20040102
  10. HALDOL [Concomitant]
     Dates: start: 20010101
  11. PRLOSEC [Concomitant]
     Dates: start: 20030923

REACTIONS (3)
  - VISION BLURRED [None]
  - TOOTH INFECTION [None]
  - TYPE 2 DIABETES MELLITUS [None]
